FAERS Safety Report 7924245-9 (Version None)
Quarter: 2011Q4

REPORT INFORMATION
  Report Type: 
  Country: None (occurrence: None)
  Receive Date: 20111117
  Receipt Date: 20110321
  Transmission Date: 20120403
  Serious: No
  Sender: FDA-Public Use
  Company Number: US-AMGEN-USASP2011015145

PATIENT
  Age: 57 Year
  Sex: Female
  Weight: 88.435 kg

DRUGS (1)
  1. ENBREL [Suspect]
     Dosage: 25 MG, 2 TIMES/WK
     Route: 058
     Dates: start: 20051114

REACTIONS (2)
  - SINUSITIS [None]
  - HERPES ZOSTER [None]
